FAERS Safety Report 20072837 (Version 8)
Quarter: 2023Q1

REPORT INFORMATION
  Report Type: Other
  Country: CA (occurrence: None)
  Receive Date: 20211116
  Receipt Date: 20230112
  Transmission Date: 20230418
  Serious: Yes (Hospitalization)
  Sender: FDA-Public Use
  Company Number: CA-ROCHE-2956334

PATIENT
  Sex: Female

DRUGS (1)
  1. OCREVUS [Suspect]
     Active Substance: OCRELIZUMAB
     Indication: Relapsing-remitting multiple sclerosis
     Dosage: MORE DOSAGE INFORMATION IS 300 MG AT DAY 0 AND 14, THEN 600 MG EVERY 6 MONTH
     Route: 042
     Dates: start: 20200521

REACTIONS (8)
  - COVID-19 [Not Recovered/Not Resolved]
  - Dysphonia [Not Recovered/Not Resolved]
  - Cough [Not Recovered/Not Resolved]
  - Infusion related reaction [Recovered/Resolved]
  - Drug hypersensitivity [Unknown]
  - Milk allergy [Unknown]
  - Pruritus [Unknown]
  - Gastrointestinal disorder [Unknown]
